FAERS Safety Report 5369768-4 (Version None)
Quarter: 2007Q2

REPORT INFORMATION
  Report Type: 
  Country: None (occurrence: None)
  Receive Date: 20070621
  Receipt Date: 20070606
  Transmission Date: 20071010
  Serious: Yes (Other)
  Sender: FDA-Public Use
  Company Number: 4893

PATIENT
  Age: 18 Year
  Sex: Male

DRUGS (1)
  1. AMNESTEEM [Suspect]
     Indication: ACNE
     Dosage: 20 MG BID PO
     Route: 048
     Dates: start: 20070524, end: 20070501

REACTIONS (3)
  - DIZZINESS [None]
  - HEADACHE [None]
  - LOSS OF CONSCIOUSNESS [None]
